FAERS Safety Report 14776712 (Version 2)
Quarter: 2018Q3

REPORT INFORMATION
  Report Type: Spontaneous
  Country: PL (occurrence: PL)
  Receive Date: 20180419
  Receipt Date: 20180730
  Transmission Date: 20181010
  Serious: Yes (Other)
  Sender: FDA-Public Use
  Company Number: PL-ROCHE-2107378

PATIENT
  Age: 63 Year
  Sex: Female

DRUGS (6)
  1. MABTHERA [Suspect]
     Active Substance: RITUXIMAB
     Dosage: 6 CYCLES IN REGIMEN AND THEN MAINTENANCE TRATMENT
     Route: 065
  2. VINCRISTINE [Suspect]
     Active Substance: VINCRISTINE
     Indication: B-CELL LYMPHOMA
     Dosage: 8 CYCLES
     Route: 065
     Dates: end: 201311
  3. CYCLOPHOSPHAMIDE. [Suspect]
     Active Substance: CYCLOPHOSPHAMIDE
     Indication: B-CELL LYMPHOMA
     Dosage: 8 CYCLES
     Route: 065
     Dates: end: 201311
  4. PREDNISONE. [Suspect]
     Active Substance: PREDNISONE
     Indication: B-CELL LYMPHOMA
     Dosage: 8 CYCLES
     Route: 065
     Dates: end: 201311
  5. MABTHERA [Suspect]
     Active Substance: RITUXIMAB
     Indication: B-CELL LYMPHOMA
     Dosage: 8 CYCLES
     Route: 065
     Dates: end: 201311
  6. BENDAMUSTINE [Suspect]
     Active Substance: BENDAMUSTINE
     Indication: B-CELL LYMPHOMA
     Dosage: 6 CYCLES
     Route: 065

REACTIONS (5)
  - Central nervous system lesion [Unknown]
  - Aphasia [Unknown]
  - Monoparesis [Unknown]
  - Progressive multifocal leukoencephalopathy [Unknown]
  - Ischaemic stroke [Unknown]

NARRATIVE: CASE EVENT DATE: 2018
